FAERS Safety Report 6411255-6 (Version None)
Quarter: 2009Q4

REPORT INFORMATION
  Report Type: 
  Country: None (occurrence: None)
  Receive Date: 20091022
  Receipt Date: 20091013
  Transmission Date: 20100525
  Serious: Yes (Life-Threatening, Hospitalization, Other)
  Sender: FDA-Public Use
  Company Number: FR-PFIZER INC-2009282360

PATIENT
  Age: 58 Year

DRUGS (6)
  1. IRINOTECAN HCL [Suspect]
     Indication: METASTASES TO PERITONEUM
     Dosage: 231 MG
     Route: 033
     Dates: start: 20090818
  2. MITOMYCIN [Suspect]
     Indication: METASTASES TO PERITONEUM
     Dosage: 35 MG
     Route: 033
     Dates: start: 20090818
  3. LOVENOX [Concomitant]
     Dosage: 40 MG DAILY
     Route: 058
     Dates: start: 20090818
  4. ROCEPHIN [Concomitant]
     Dosage: 2 G DAILY
     Route: 042
     Dates: start: 20090831
  5. TRIFLUCAN [Concomitant]
     Dosage: 400 MG DAILY
     Route: 042
     Dates: start: 20090902
  6. NEXIUM [Concomitant]
     Dosage: 40 MG DAILY
     Route: 042
     Dates: start: 20090818

REACTIONS (2)
  - PLEURAL EFFUSION [None]
  - RESPIRATORY DISTRESS [None]
